FAERS Safety Report 6196082-X (Version None)
Quarter: 2009Q2

REPORT INFORMATION
  Report Type: 
  Country: None (occurrence: None)
  Receive Date: 20090512
  Receipt Date: 20090430
  Transmission Date: 20091009
  Serious: Yes (Death)
  Sender: FDA-Public Use
  Company Number: 2009020169

PATIENT
  Age: 72 Year
  Sex: Male

DRUGS (6)
  1. HAEMOCOMPLETTAN (FIBRINOGEN CONCENTRATE (HUMAN)) [Suspect]
     Dosage: 2 G INTRAVENOUS
     Route: 042
     Dates: start: 20090325, end: 20090325
  2. ACTIVASE [Suspect]
     Indication: CEREBRAL INFARCTION
     Dosage: 68 MG INTRAVENOUS
     Route: 042
     Dates: start: 20090325, end: 20090325
  3. ASPIRIN [Suspect]
     Dosage: ORAL
     Route: 048
     Dates: start: 20090318, end: 20090327
  4. PLAVIX [Suspect]
     Dosage: ORAL
     Route: 048
     Dates: start: 20090318
  5. ENOXAPARIN SODIUM [Suspect]
     Dosage: 40 MG
     Route: 058
  6. BEBULIN VH IMMUNO [Suspect]
     Dosage: 2400 IU, INTRAVENOUS
     Route: 042
     Dates: start: 20090325, end: 20090325

REACTIONS (8)
  - BRAIN HERNIATION [None]
  - CORONARY ARTERY EMBOLISM [None]
  - EPISTAXIS [None]
  - HAEMATEMESIS [None]
  - HAEMATOMA [None]
  - ISCHAEMIC STROKE [None]
  - MYOCARDIAL INFARCTION [None]
  - NERVOUS SYSTEM DISORDER [None]
